FAERS Safety Report 6680996-8 (Version None)
Quarter: 2010Q2

REPORT INFORMATION
  Report Type: 
  Country: None (occurrence: None)
  Receive Date: 20100414
  Receipt Date: 20100406
  Transmission Date: 20101027
  Serious: Yes (Other)
  Sender: FDA-Public Use
  Company Number: US-BAYER-201014031BCC

PATIENT
  Age: 61 Year
  Sex: Male
  Weight: 83 kg

DRUGS (3)
  1. ASPIRIN [Suspect]
     Indication: PAIN
     Dosage: ONCE EVERY 7 HOURS
     Route: 048
     Dates: start: 20091117
  2. MOTRIN IB [Suspect]
     Indication: PAIN
     Dosage: UNIT DOSE: 200 MG
     Route: 048
     Dates: start: 20091117, end: 20100117
  3. VICODIN [Suspect]
     Indication: PAIN
     Dosage: 1 IN 7 HOUR
     Route: 065

REACTIONS (2)
  - GASTROINTESTINAL HAEMORRHAGE [None]
  - GASTROINTESTINAL ULCER [None]
